FAERS Safety Report 6880339-0 (Version None)
Quarter: 2010Q3

REPORT INFORMATION
  Report Type: 
  Country: None (occurrence: None)
  Receive Date: 20100728
  Receipt Date: 20100715
  Transmission Date: 20110219
  Serious: Yes (Other)
  Sender: FDA-Public Use
  Company Number: JP-PFIZER INC-2010076768

PATIENT
  Age: 76 Year
  Sex: Female

DRUGS (2)
  1. XALATAN [Suspect]
     Indication: GLAUCOMA
     Dosage: 1 DROP/DAY
     Route: 047
     Dates: start: 20061001
  2. KARY UNI [Suspect]
     Indication: CATARACT
     Dosage: 5 DROPS/DAY

REACTIONS (3)
  - ABDOMINAL DISCOMFORT [None]
  - HYPERTENSION [None]
  - NASAL CONGESTION [None]
